FAERS Safety Report 8100412-9 (Version None)
Quarter: 2012Q1

REPORT INFORMATION
  Report Type: 
  Country: None (occurrence: None)
  Receive Date: 20120129
  Receipt Date: 20111215
  Transmission Date: 20120608
  Serious: No
  Sender: FDA-Public Use
  Company Number: US-ABBOTT-11P-163-0865715-00

PATIENT
  Sex: Female

DRUGS (6)
  1. RANITIDINE [Concomitant]
  2. TRAMADOL HCL [Concomitant]
     Indication: PRODUCT USED FOR UNKNOWN INDICATION
     Dosage: PRN
  3. DEXILANT CAPS [Concomitant]
  4. LEVOXYL [Concomitant]
  5. HUMIRA [Suspect]
     Indication: RHEUMATOID ARTHRITIS
     Route: 058
     Dates: start: 20111001
  6. GABAPENTIN [Concomitant]
     Indication: PRODUCT USED FOR UNKNOWN INDICATION
     Dosage: PRN

REACTIONS (8)
  - BACK PAIN [None]
  - PAIN [None]
  - HEADACHE [None]
  - UPPER RESPIRATORY TRACT CONGESTION [None]
  - MIGRAINE [None]
  - CHEST DISCOMFORT [None]
  - PALPITATIONS [None]
  - ERUCTATION [None]
